FAERS Safety Report 8384237 (Version 3)
Quarter: 2012Q4

REPORT INFORMATION
  Report Type: 
  Country: US (occurrence: US)
  Receive Date: 20120202
  Receipt Date: 20121220
  Transmission Date: 20130627
  Serious: No
  Sender: FDA-Public Use
  Company Number: US-PFIZER INC-2012027664

PATIENT
  Sex: Female

DRUGS (1)
  1. CHANTIX [Suspect]
     Dosage: UNK
     Route: 048
     Dates: start: 2011, end: 2011

REACTIONS (4)
  - Malaise [Unknown]
  - Gastric disorder [Unknown]
  - Dizziness [Unknown]
  - Abdominal discomfort [Unknown]
